FAERS Safety Report 5285751-1 (Version None)
Quarter: 2007Q1

REPORT INFORMATION
  Report Type: 
  Country: None (occurrence: None)
  Receive Date: 20070128
  Receipt Date: 20060308
  Transmission Date: 20070707
  Serious: Yes (Other)
  Sender: FDA-Public Use
  Company Number: US-JNJFOC-20060302621

PATIENT
  Age: 45 Year
  Sex: Female

DRUGS (1)
  1. TERAZOL 1 [Suspect]
     Indication: FUNGAL INFECTION
     Dosage: RECTAL
     Route: 054
     Dates: start: 20010101, end: 20010101

REACTIONS (2)
  - HYPERHIDROSIS [None]
  - PYREXIA [None]
